FAERS Safety Report 6700754-5 (Version None)
Quarter: 2010Q2

REPORT INFORMATION
  Report Type: 
  Country: None (occurrence: None)
  Receive Date: 20100428
  Receipt Date: 20100421
  Transmission Date: 20101027
  Serious: Yes (Other)
  Sender: FDA-Public Use
  Company Number: CN-BRISTOL-MYERS SQUIBB COMPANY-15071244

PATIENT
  Age: 44 Year
  Sex: Male

DRUGS (3)
  1. CISPLATIN [Suspect]
     Dosage: ON DAYS 1 THROUGH 4
     Route: 042
  2. ADRIAMYCIN PFS [Suspect]
     Dosage: ON 1ST AND 3 RD DAY OF THE WEEK
     Route: 042
  3. DACARBAZINE [Suspect]
     Dosage: ON DAYS 1 THROUGH 3
     Route: 042

REACTIONS (1)
  - TUMOUR LYSIS SYNDROME [None]
